FAERS Safety Report 22531169 (Version 1)
Quarter: 2023Q2

REPORT INFORMATION
  Report Type: Spontaneous
  Country: FR (occurrence: FR)
  Receive Date: 20230607
  Receipt Date: 20230607
  Transmission Date: 20230722
  Serious: Yes (Other)
  Sender: FDA-Public Use
  Company Number: None

PATIENT
  Age: 79 Year
  Sex: Female
  Weight: 42 kg

DRUGS (6)
  1. ZIRABEV [Suspect]
     Active Substance: BEVACIZUMAB-BVZR
     Indication: Ovarian cancer
     Dosage: 615 MG, EVERY 3 WEEKS
     Route: 042
     Dates: start: 20220707
  2. ZIRABEV [Suspect]
     Active Substance: BEVACIZUMAB-BVZR
     Dosage: 615 MG, EVERY 3 WEEKS
     Route: 042
  3. ZIRABEV [Suspect]
     Active Substance: BEVACIZUMAB-BVZR
     Dosage: 615 MG, EVERY 3 WEEKS
     Route: 042
  4. ZIRABEV [Suspect]
     Active Substance: BEVACIZUMAB-BVZR
     Dosage: 615 MG, EVERY 3 WEEKS
     Route: 042
  5. ZIRABEV [Suspect]
     Active Substance: BEVACIZUMAB-BVZR
     Dosage: 615 MG, EVERY 3 WEEKS
     Route: 042
     Dates: end: 20221117
  6. LYNPARZA [Concomitant]
     Active Substance: OLAPARIB
     Indication: Ovarian cancer
     Dosage: 100 MG, 1X/DAY
     Route: 048
     Dates: start: 20220707, end: 20220818

REACTIONS (2)
  - Hypertension [Recovered/Resolved]
  - Nervous system disorder [Recovered/Resolved]

NARRATIVE: CASE EVENT DATE: 20221101
